FAERS Safety Report 7157113-3 (Version None)
Quarter: 2010Q4

REPORT INFORMATION
  Report Type: 
  Country: None (occurrence: None)
  Receive Date: 20101214
  Receipt Date: 20100107
  Transmission Date: 20110411
  Serious: No
  Sender: FDA-Public Use
  Company Number: US-ASTRAZENECA-2010SE00714

PATIENT
  Sex: Female
  Weight: 81.6 kg

DRUGS (4)
  1. CRESTOR [Suspect]
     Indication: BLOOD CHOLESTEROL INCREASED
     Route: 048
     Dates: start: 20091001, end: 20091214
  2. SEROQUEL XR [Suspect]
     Indication: FEELING OF RELAXATION
     Route: 048
     Dates: start: 20090601, end: 20091218
  3. DIAZEPAM [Concomitant]
  4. ABILIFY [Concomitant]

REACTIONS (4)
  - BLOOD CHOLESTEROL INCREASED [None]
  - DENTAL OPERATION [None]
  - MIGRAINE [None]
  - WEIGHT INCREASED [None]
